FAERS Safety Report 5312186-5 (Version None)
Quarter: 2007Q2

REPORT INFORMATION
  Report Type: 
  Country: None (occurrence: None)
  Receive Date: 20070430
  Receipt Date: 20060915
  Transmission Date: 20071010
  Serious: No
  Sender: FDA-Public Use
  Company Number: 2006UW18136

PATIENT
  Age: 71 Year
  Sex: Female
  Weight: 90.7 kg

DRUGS (2)
  1. NEXIUM [Suspect]
     Indication: OESOPHAGEAL DISORDER
     Route: 048
     Dates: start: 20040101
  2. BLOOD PRESSURE MEDICATION [Concomitant]

REACTIONS (1)
  - SKIN DISCOLOURATION [None]
